FAERS Safety Report 11702661 (Version 2)
Quarter: 2016Q1

REPORT INFORMATION
  Report Type: Spontaneous
  Country: US (occurrence: US)
  Receive Date: 20151105
  Receipt Date: 20160113
  Transmission Date: 20160525
  Serious: Yes (Hospitalization, Other)
  Sender: FDA-Public Use
  Company Number: US-PFIZER INC-2015371612

PATIENT
  Age: 63 Year
  Sex: Male

DRUGS (6)
  1. DEPO-TESTOSTERONE [Suspect]
     Active Substance: TESTOSTERONE CYPIONATE
     Indication: BLOOD TESTOSTERONE DECREASED
     Dosage: UNK (TWICE MONTHLY)
     Dates: end: 2012
  2. DANAZOL. [Suspect]
     Active Substance: DANAZOL
     Indication: HORMONE REPLACEMENT THERAPY
     Dosage: UNK, 1X/DAY
     Dates: end: 2012
  3. TESTOSTERONE CIPIONATE [Suspect]
     Active Substance: TESTOSTERONE
     Indication: BLOOD TESTOSTERONE DECREASED
  4. TESTOSTERONE CIPIONATE [Suspect]
     Active Substance: TESTOSTERONE
     Indication: HORMONE REPLACEMENT THERAPY
     Dosage: UNK (TWICE MONTHLY)
     Dates: end: 2012
  5. DEPO-TESTOSTERONE [Suspect]
     Active Substance: TESTOSTERONE CYPIONATE
     Indication: HORMONE REPLACEMENT THERAPY
     Dosage: UNK
     Dates: start: 201201, end: 201206
  6. DANAZOL. [Suspect]
     Active Substance: DANAZOL
     Indication: BLOOD TESTOSTERONE DECREASED

REACTIONS (2)
  - Cerebrovascular accident [Unknown]
  - Embolism [Unknown]

NARRATIVE: CASE EVENT DATE: 201205
